FAERS Safety Report 8760489 (Version 2)
Quarter: 2013Q4

REPORT INFORMATION
  Report Type: Spontaneous
  Country: JP (occurrence: JP)
  Receive Date: 20120830
  Receipt Date: 20131105
  Transmission Date: 20140711
  Serious: Yes (Disabling)
  Sender: FDA-Public Use
  Company Number: JP-009507513-1208JPN008107

PATIENT
  Age: 44 Year
  Sex: Female

DRUGS (2)
  1. RINDERON-A [Suspect]
     Dosage: UNK
     Dates: start: 199102, end: 199306
  2. RINDERON-V [Suspect]
     Dosage: UNK
     Dates: start: 199305, end: 199404

REACTIONS (2)
  - Glaucoma [Unknown]
  - Cataract [Unknown]
